FAERS Safety Report 13043449 (Version 1)
Quarter: 2016Q4

REPORT INFORMATION
  Report Type: Spontaneous
  Country: US (occurrence: US)
  Receive Date: 20161220
  Receipt Date: 20161220
  Transmission Date: 20170207
  Serious: No
  Sender: FDA-Public Use
  Company Number: US-009507513-1612USA000622

PATIENT
  Sex: Female

DRUGS (1)
  1. NEXPLANON [Suspect]
     Active Substance: ETONOGESTREL
     Indication: CONTRACEPTION
     Dosage: 1 IMPLANT EVERY 3 YEARS, LEFT ARM
     Route: 059
     Dates: start: 201507

REACTIONS (10)
  - Poor quality sleep [Unknown]
  - Fluid retention [Unknown]
  - Joint swelling [Unknown]
  - Malaise [Unknown]
  - Cough [Unknown]
  - Back pain [Unknown]
  - Weight increased [Unknown]
  - Nausea [Unknown]
  - Weight loss poor [Unknown]
  - Depression [Unknown]

NARRATIVE: CASE EVENT DATE: 2015
